FAERS Safety Report 9350933 (Version 4)
Quarter: 2014Q4

REPORT INFORMATION
  Report Type: Spontaneous
  Country: US (occurrence: US)
  Receive Date: 20130617
  Receipt Date: 20141013
  Transmission Date: 20150529
  Serious: Yes (Life-Threatening, Hospitalization)
  Sender: FDA-Public Use
  Company Number: US-BAYER-2013-071174

PATIENT
  Age: 24 Year
  Sex: Female
  Weight: 73 kg

DRUGS (3)
  1. FLAGYL [Concomitant]
     Active Substance: METRONIDAZOLE\METRONIDAZOLE HYDROCHLORIDE
     Indication: VAGINAL INFECTION
     Dosage: 500 MG, UNK
  2. MIRENA [Suspect]
     Active Substance: LEVONORGESTREL
     Indication: CONTRACEPTION
     Dosage: 20 MCG/24HR, CONT
     Route: 015
     Dates: start: 20080825, end: 20110926
  3. METRONIDAZOLE. [Concomitant]
     Active Substance: METRONIDAZOLE
     Dosage: 500 MG, QD FOR 7 DAYS

REACTIONS (11)
  - Pain [None]
  - Abdominal pain lower [None]
  - Injury [None]
  - General physical health deterioration [None]
  - Stress [None]
  - Menorrhagia [Recovered/Resolved]
  - Anxiety [None]
  - Uterine perforation [None]
  - Device dislocation [None]
  - Infection [None]
  - Anhedonia [None]

NARRATIVE: CASE EVENT DATE: 201109
